FAERS Safety Report 14176414 (Version 11)
Quarter: 2022Q2

REPORT INFORMATION
  Report Type: Other
  Country: GB (occurrence: GB)
  Receive Date: 20171109
  Receipt Date: 20220614
  Transmission Date: 20220720
  Serious: Yes (Other)
  Sender: FDA-Public Use
  Company Number: GB-ROCHE-1962664

PATIENT
  Sex: Male

DRUGS (14)
  1. ESBRIET [Suspect]
     Active Substance: PIRFENIDONE
     Indication: Idiopathic pulmonary fibrosis
     Route: 048
     Dates: start: 20170515
  2. ESBRIET [Suspect]
     Active Substance: PIRFENIDONE
     Route: 048
  3. ESBRIET [Suspect]
     Active Substance: PIRFENIDONE
     Route: 048
  4. ESBRIET [Suspect]
     Active Substance: PIRFENIDONE
     Route: 048
  5. ESBRIET [Suspect]
     Active Substance: PIRFENIDONE
     Route: 048
  6. ESBRIET [Suspect]
     Active Substance: PIRFENIDONE
     Route: 048
  7. ATORVASTATIN [Concomitant]
     Active Substance: ATORVASTATIN
  8. FLECAINIDE [Concomitant]
     Active Substance: FLECAINIDE
  9. ATENOLOL [Concomitant]
     Active Substance: ATENOLOL
  10. ALLOPURINOL [Concomitant]
     Active Substance: ALLOPURINOL
  11. AMITRIPTYLINE [Concomitant]
     Active Substance: AMITRIPTYLINE
  12. IRBESARTAN [Concomitant]
     Active Substance: IRBESARTAN
  13. AMLODIPINE [Concomitant]
     Active Substance: AMLODIPINE BESYLATE
  14. ESCITALOPRAM [Concomitant]
     Active Substance: ESCITALOPRAM OXALATE

REACTIONS (19)
  - Diarrhoea [Unknown]
  - Pruritus [Recovered/Resolved]
  - Weight decreased [Not Recovered/Not Resolved]
  - Lower respiratory tract infection [Unknown]
  - Illness [Unknown]
  - Dizziness [Unknown]
  - Cough [Unknown]
  - Forced vital capacity decreased [Unknown]
  - Depressed mood [Unknown]
  - Paraesthesia [Unknown]
  - Rash [Recovered/Resolved]
  - Pneumonia [Unknown]
  - Fatigue [Not Recovered/Not Resolved]
  - Arrhythmia [Unknown]
  - Campylobacter gastroenteritis [Unknown]
  - Decreased appetite [Recovering/Resolving]
  - Abdominal pain upper [Unknown]
  - Mass [Unknown]
  - Feeling abnormal [Unknown]
